FAERS Safety Report 4860250-7 (Version None)
Quarter: 2005Q4

REPORT INFORMATION
  Report Type: 
  Country: None (occurrence: None)
  Receive Date: 20051215
  Receipt Date: 20051205
  Transmission Date: 20060501
  Serious: Yes (Other)
  Sender: FDA-Public Use
  Company Number: HQWYE891307DEC05

PATIENT
  Sex: Female

DRUGS (3)
  1. PREMARIN [Suspect]
  2. CYCRIN (MEDROXYPROGESTERON ACETATE, TABLET, UNSPEC) [Suspect]
  3. PROVERA [Suspect]

REACTIONS (2)
  - BREAST CANCER FEMALE [None]
  - RENAL MASS [None]
